FAERS Safety Report 13637605 (Version 3)
Quarter: 2017Q2

REPORT INFORMATION
  Report Type: Spontaneous
  Country: CH (occurrence: CH)
  Receive Date: 20170609
  Receipt Date: 20170621
  Transmission Date: 20170830
  Serious: Yes (Hospitalization)
  Sender: FDA-Public Use
  Company Number: CH-PFIZER INC-2017250744

PATIENT
  Age: 75 Year
  Sex: Male

DRUGS (9)
  1. STILNOX [Concomitant]
     Active Substance: ZOLPIDEM TARTRATE
     Dosage: 10 MG, 1X/DAY (0-0-0-1)
  2. PANTOPRAZOL [Concomitant]
     Active Substance: PANTOPRAZOLE SODIUM
     Dosage: 40 MG, 1X/DAY (0-0-1)
  3. SURMONTIL [Concomitant]
     Active Substance: TRIMIPRAMINE MALEATE
     Dosage: 25 MG, 1X/DAY (0-0-0-1), AS LONG-TERM THERAPY)
  4. LYRICA [Suspect]
     Active Substance: PREGABALIN
     Dosage: 75 MG, 1X/DAY (0-0-0-1)
     Dates: start: 20170324, end: 20170418
  5. IRFEN [Concomitant]
     Active Substance: IBUPROFEN
     Dosage: 400 MG, 2X/DAY (0-1-0-1)
     Dates: start: 201703, end: 20170418
  6. NORVASC [Concomitant]
     Active Substance: AMLODIPINE BESYLATE
     Dosage: 10 MG, 1X/DAY (1-0-0)
  7. XARELTO [Concomitant]
     Active Substance: RIVAROXABAN
     Dosage: 10 MG, 1X/DAY (0-0-1)
     Dates: start: 20170306, end: 20170418
  8. TRITTICO AC [Concomitant]
     Active Substance: TRAZODONE HYDROCHLORIDE
     Dosage: 50 MG, 1X/DAY (0-0-1), AS LONG-TERM THERAPY)
  9. NOVALGIN [Concomitant]
     Active Substance: METAMIZOLE SODIUM
     Dosage: 500 MG, 4X/DAY (1-1-1-1)

REACTIONS (1)
  - Eosinophilic pneumonia [Recovering/Resolving]

NARRATIVE: CASE EVENT DATE: 20170411
